FAERS Safety Report 4897720-1 (Version None)
Quarter: 2006Q1

REPORT INFORMATION
  Report Type: 
  Country: None (occurrence: None)
  Receive Date: 20060201
  Receipt Date: 20050725
  Transmission Date: 20060701
  Serious: Yes (Hospitalization)
  Sender: FDA-Public Use
  Company Number: FR-BOEHRINGER INGELHEIM PHARMACEUTICALS, INC.-2005-FF-00534FF

PATIENT
  Sex: Male
  Weight: 62 kg

DRUGS (10)
  1. TIPRANAVIR + RITONAVIR CO-ADMIN [Suspect]
     Indication: HIV INFECTION
     Dosage: TPV/RTV: 500/100 B.I.D.
     Route: 048
     Dates: start: 20031113, end: 20050509
  2. TIPRANAVIR + RITONAVIR CO-ADMIN [Suspect]
     Dosage: TPV/RTV: 500/100 B.I.D.
     Route: 048
     Dates: start: 20050601
  3. VIDEX [Concomitant]
     Indication: HIV INFECTION
     Route: 048
     Dates: start: 20000401, end: 20050509
  4. VIDEX [Concomitant]
     Route: 048
     Dates: start: 20050601
  5. EPIVIR [Concomitant]
     Indication: HIV INFECTION
     Route: 048
     Dates: start: 20040728, end: 20050509
  6. EPIVIR [Concomitant]
     Route: 048
     Dates: start: 20050601
  7. VIREAD [Concomitant]
     Indication: HIV INFECTION
     Route: 048
     Dates: start: 20000401, end: 20050509
  8. VIREAD [Concomitant]
     Route: 048
     Dates: start: 20050601
  9. FUZEON [Concomitant]
     Indication: HIV INFECTION
     Route: 058
     Dates: start: 20031113, end: 20050509
  10. FUZEON [Concomitant]
     Route: 058
     Dates: start: 20050601

REACTIONS (2)
  - DIARRHOEA INFECTIOUS [None]
  - WEIGHT DECREASED [None]
